FAERS Safety Report 10619400 (Version 1)
Quarter: 2014Q4

REPORT INFORMATION
  Report Type: Spontaneous
  Country: US (occurrence: US)
  Receive Date: 20141202
  Receipt Date: 20141202
  Transmission Date: 20150529
  Serious: No
  Sender: FDA-Public Use
  Company Number: US-TEVA-526472USA

PATIENT
  Age: 20 Year
  Sex: Female
  Weight: 102.6 kg

DRUGS (3)
  1. VYVANSE [Concomitant]
     Active Substance: LISDEXAMFETAMINE DIMESYLATE
     Indication: ATTENTION DEFICIT/HYPERACTIVITY DISORDER
  2. PLAN B ONE-STEP [Suspect]
     Active Substance: LEVONORGESTREL
     Indication: POST COITAL CONTRACEPTION
     Dosage: 1.5 MILLIGRAM DAILY;
     Route: 048
     Dates: start: 20141118, end: 20141118
  3. XANAX [Concomitant]
     Active Substance: ALPRAZOLAM
     Indication: ANXIETY

REACTIONS (2)
  - Menstruation irregular [Recovered/Resolved]
  - Diarrhoea [Recovered/Resolved]

NARRATIVE: CASE EVENT DATE: 20141118
